FAERS Safety Report 10717640 (Version 5)
Quarter: 2015Q3

REPORT INFORMATION
  Report Type: Report from Study
  Country: CA (occurrence: CA)
  Receive Date: 20150116
  Receipt Date: 20150828
  Transmission Date: 20151125
  Serious: Yes (Other)
  Sender: FDA-Public Use
  Company Number: CA-GILEAD-2015-0131181

PATIENT
  Age: 63 Year
  Sex: Male

DRUGS (2)
  1. VIREAD [Interacting]
     Active Substance: TENOFOVIR DISOPROXIL FUMARATE
     Indication: HEPATITIS B
     Dosage: UNK
     Route: 065
  2. LEDIPASVIR/SOFOSBUVIR [Suspect]
     Active Substance: LEDIPASVIR\SOFOSBUVIR
     Indication: HEPATITIS C
     Dosage: 1 DF, UNK
     Route: 065

REACTIONS (13)
  - Heart rate increased [Unknown]
  - Fatigue [Unknown]
  - Diarrhoea [Unknown]
  - Insomnia [Recovered/Resolved]
  - Decreased appetite [Unknown]
  - Dry skin [Unknown]
  - Confusional state [Unknown]
  - Nausea [Unknown]
  - Drug interaction [Unknown]
  - Chills [Unknown]
  - Oropharyngeal pain [Unknown]
  - Dizziness [Unknown]
  - Mental impairment [Unknown]
